FAERS Safety Report 8537279-0 (Version None)
Quarter: 2012Q3

REPORT INFORMATION
  Report Type: 
  Country: None (occurrence: None)
  Receive Date: 20120725
  Receipt Date: 20120717
  Transmission Date: 20120928
  Serious: No
  Sender: FDA-Public Use
  Company Number: JP-NAPPMUNDI-MAG-2011-0001990

PATIENT
  Sex: Male
  Weight: 51 kg

DRUGS (8)
  1. FENTANYL CITRATE [Suspect]
     Indication: CANCER PAIN
     Dosage: 4 MG, UNK
     Route: 062
     Dates: start: 20111212
  2. OXYCODONE HCL [Suspect]
     Dosage: 20 MG, DAILY
     Route: 048
     Dates: start: 20111109
  3. NOVAMIN                            /00013301/ [Concomitant]
     Indication: NAUSEA
     Dosage: UNK UNK, PRN
     Route: 048
     Dates: start: 20111109
  4. OXYCODONE HCL [Suspect]
     Indication: CANCER PAIN
     Dosage: 10 MG, DAILY
     Route: 048
     Dates: start: 20111107
  5. OXYCODONE HCL [Suspect]
     Dosage: 30 MG, DAILY
     Route: 048
     Dates: start: 20111205, end: 20111211
  6. MAGLAX [Concomitant]
     Indication: CONSTIPATION
     Dosage: UNK UNK, PRN
     Route: 048
     Dates: start: 20111109
  7. OXYCODONE HCL [Suspect]
     Indication: CANCER PAIN
     Dosage: 5 MG, PRN
     Route: 048
     Dates: start: 20111114
  8. FENTANYL CITRATE [Suspect]
     Dosage: 1 MG, DAILY
     Dates: start: 20111205

REACTIONS (3)
  - NAUSEA [None]
  - DECREASED APPETITE [None]
  - CONSTIPATION [None]
